FAERS Safety Report 12359004 (Version 1)
Quarter: 2016Q2

REPORT INFORMATION
  Report Type: Spontaneous
  Country: US (occurrence: None)
  Receive Date: 20160511
  Receipt Date: 20160511
  Transmission Date: 20160815
  Serious: Yes (Hospitalization, Other)
  Sender: FDA-Public Use
  Company Number: None

PATIENT
  Age: 33 Year
  Sex: Male
  Weight: 79.38 kg

DRUGS (4)
  1. ENTOCORT [Concomitant]
     Active Substance: BUDESONIDE
  2. XANAX [Concomitant]
     Active Substance: ALPRAZOLAM
  3. CENTRUM MEN^S MULTIVITAMIN [Concomitant]
  4. MERCAPTOPURINE. [Suspect]
     Active Substance: MERCAPTOPURINE
     Indication: CROHN^S DISEASE
     Route: 048
     Dates: start: 20141001, end: 20141107

REACTIONS (1)
  - Pancreatitis [None]

NARRATIVE: CASE EVENT DATE: 20141106
